FAERS Safety Report 7279603-5 (Version None)
Quarter: 2011Q1

REPORT INFORMATION
  Report Type: 
  Country: None (occurrence: None)
  Receive Date: 20110203
  Receipt Date: 20110203
  Transmission Date: 20110831
  Serious: Yes (Hospitalization)
  Sender: FDA-Public Use
  Company Number: None

PATIENT
  Sex: Female
  Weight: 91 kg

DRUGS (13)
  1. ESCITALOPRAM [Concomitant]
  2. LAMOTRIGINE [Suspect]
     Indication: CONVULSION
     Dosage: 100 MG BID ORAL
     Route: 048
     Dates: start: 20110105, end: 20110128
  3. DESVENLAFAXINE [Concomitant]
  4. POTASSIUM CHLORIDE [Concomitant]
  5. CLOZAPINE [Concomitant]
  6. PHENYTOIN [Concomitant]
  7. CARBIDOPE/LEVODOPA [Concomitant]
  8. FLUDROCORTISONE [Concomitant]
  9. CLONAZEPAM [Concomitant]
  10. MIDODRINE HYDROCHLORIDE [Concomitant]
  11. MUPIROCIN [Concomitant]
  12. DIGOXIN [Concomitant]
  13. IBUPROFEN [Concomitant]

REACTIONS (2)
  - AGITATION [None]
  - DELIRIUM [None]
